FAERS Safety Report 10252013 (Version 2)
Quarter: 2014Q2

REPORT INFORMATION
  Report Type: Report from Study
  Country: US (occurrence: US)
  Receive Date: 20140623
  Receipt Date: 20140627
  Transmission Date: 20141212
  Serious: Yes (Other)
  Sender: FDA-Public Use
  Company Number: PHEH2014US012238

PATIENT
  Age: 11 Year
  Sex: Female

DRUGS (1)
  1. ILARIS [Suspect]
     Dosage: 180 MG, EVERY 8 WEEKS
     Route: 058
     Dates: start: 201405

REACTIONS (1)
  - Urinary tract infection [Unknown]
